FAERS Safety Report 7645307-X (Version None)
Quarter: 2011Q3

REPORT INFORMATION
  Report Type: 
  Country: None (occurrence: None)
  Receive Date: 20110729
  Receipt Date: 20110714
  Transmission Date: 20111222
  Serious: Yes (Other)
  Sender: FDA-Public Use
  Company Number: GB-ARROW GEN-2011-11008

PATIENT
  Sex: Female

DRUGS (2)
  1. CITALOPRAM HYDROBROMIDE [Suspect]
     Indication: DEPRESSION
     Dosage: 20 MG, UNKNOWN
     Route: 048
     Dates: start: 20110117, end: 20110101
  2. PREMPAK-C [Concomitant]
     Indication: PRODUCT USED FOR UNKNOWN INDICATION
     Dosage: 1.25 MG, UNKNOWN
     Route: 048
     Dates: start: 20100716

REACTIONS (7)
  - NAUSEA [None]
  - SUICIDAL IDEATION [None]
  - DEPRESSION [None]
  - FEELING ABNORMAL [None]
  - DRUG INEFFECTIVE [None]
  - ANXIETY [None]
  - MALAISE [None]
